FAERS Safety Report 13749072 (Version 3)
Quarter: 2017Q3

REPORT INFORMATION
  Report Type: Spontaneous
  Country: BR (occurrence: BR)
  Receive Date: 20170713
  Receipt Date: 20170804
  Transmission Date: 20171127
  Serious: Yes (Other)
  Sender: FDA-Public Use
  Company Number: BR-ROCHE-1960972

PATIENT
  Sex: Female
  Weight: 95 kg

DRUGS (4)
  1. RIVOTRIL [Suspect]
     Active Substance: CLONAZEPAM
     Indication: DEPRESSION
  2. RIVOTRIL [Suspect]
     Active Substance: CLONAZEPAM
     Indication: INSOMNIA
     Route: 048
  3. RIVOTRIL [Suspect]
     Active Substance: CLONAZEPAM
     Indication: PANIC DISORDER
  4. RIVOTRIL [Suspect]
     Active Substance: CLONAZEPAM
     Indication: ANXIETY
     Route: 048

REACTIONS (12)
  - Foot fracture [Not Recovered/Not Resolved]
  - Fall [Unknown]
  - Loose tooth [Unknown]
  - Tooth fracture [Unknown]
  - Off label use [Unknown]
  - Incorrect dose administered [Unknown]
  - Product dropper issue [Unknown]
  - Wrong technique in product usage process [Unknown]
  - Blood calcium decreased [Unknown]
  - Ill-defined disorder [Not Recovered/Not Resolved]
  - Neuralgia [Unknown]
  - Vitamin D decreased [Unknown]

NARRATIVE: CASE EVENT DATE: 2016
